FAERS Safety Report 5164467-6 (Version None)
Quarter: 2006Q4

REPORT INFORMATION
  Report Type: 
  Country: None (occurrence: None)
  Receive Date: 20061127
  Receipt Date: 20061127
  Transmission Date: 20070319
  Serious: Yes (Life-Threatening, Hospitalization)
  Sender: FDA-Public Use
  Company Number: None

PATIENT
  Age: 46 Year
  Sex: Male
  Weight: 68.0396 kg

DRUGS (7)
  1. CLOZAPINE [Suspect]
     Indication: SCHIZOAFFECTIVE DISORDER
     Dosage: 300MG  DAILY  PO
     Route: 048
     Dates: start: 20060809, end: 20060918
  2. DIVALPROEX SODIUM EXTENDED RELEASE [Concomitant]
  3. ADVAIR DISKUS 100/50 [Concomitant]
  4. BENZTROPINE MESYLATE [Concomitant]
  5. HUMABID LA [Concomitant]
  6. PANTOPRAZOLE SODIUM [Concomitant]
  7. LEVOFLOXACIN [Concomitant]

REACTIONS (4)
  - ABDOMINAL DISCOMFORT [None]
  - DROOLING [None]
  - FAECALOMA [None]
  - VOMITING [None]
